FAERS Safety Report 7104119-6 (Version None)
Quarter: 2010Q4

REPORT INFORMATION
  Report Type: 
  Country: None (occurrence: None)
  Receive Date: 20101115
  Receipt Date: 20100513
  Transmission Date: 20110411
  Serious: No
  Sender: FDA-Public Use
  Company Number: US-ALLERGAN-1006309US

PATIENT
  Sex: Female

DRUGS (1)
  1. BOTOX COSMETIC [Suspect]
     Indication: SKIN WRINKLING
     Dosage: 60 UNITS, SINGLE
     Dates: start: 20100421, end: 20100421

REACTIONS (3)
  - INJECTION SITE RASH [None]
  - INJECTION SITE REACTION [None]
  - SENSORY DISTURBANCE [None]
